FAERS Safety Report 6211592-4 (Version None)
Quarter: 2009Q2

REPORT INFORMATION
  Report Type: 
  Country: None (occurrence: None)
  Receive Date: 20090602
  Receipt Date: 20090522
  Transmission Date: 20091009
  Serious: Yes (Other)
  Sender: FDA-Public Use
  Company Number: US-JNJFOC-20090506160

PATIENT
  Age: 88 Year
  Sex: Female
  Weight: 53.52 kg

DRUGS (24)
  1. TYLENOL (CAPLET) [Suspect]
     Route: 048
  2. TYLENOL (CAPLET) [Suspect]
     Indication: PAIN
     Route: 048
  3. OSTEO BI-FLEX [Concomitant]
     Indication: ARTHROPATHY
  4. ASPIRIN [Concomitant]
     Indication: CARDIAC DISORDER
     Dosage: ^FOR YEARS^
  5. GEMFIBROZIL [Concomitant]
     Indication: BLOOD CHOLESTEROL ABNORMAL
     Dosage: ^FOR YEARS^
  6. AMLODIPINE [Concomitant]
     Indication: HYPERTENSION
     Dosage: ^FOR YEARS^
  7. ATENOLOL [Concomitant]
     Indication: HYPERTENSION
     Dosage: ^FOR YEARS^
  8. AVAPRO [Concomitant]
     Indication: HYPERTENSION
     Dosage: ^FOR YEARS^
  9. NIACIN [Concomitant]
     Indication: MEDICAL DIET
     Dosage: ^FOR YEARS^
  10. VITAMIN [Concomitant]
     Indication: EYE DISORDER
     Dosage: ^FOR YEARS^
  11. ASCORBIC ACID [Concomitant]
     Indication: MEDICAL DIET
     Dosage: ^FOR YEARS^
  12. EYE DROPS [Concomitant]
     Indication: DRY EYE
     Dosage: ^FOR YEARS^
  13. RANITIDINE [Concomitant]
     Indication: DYSPEPSIA
     Dosage: ^FOR YEARS^
  14. CALTRATE WITH D [Concomitant]
     Indication: MEDICAL DIET
     Dosage: ^FOR YEARS^
  15. FEXOFENADINE [Concomitant]
     Indication: SEASONAL ALLERGY
  16. EXELON [Concomitant]
     Indication: CHOLINESTERASE INHIBITION
     Dosage: ^FOR YEARS^
  17. MAGNESIUM SULFATE [Concomitant]
     Indication: VITAMIN SUPPLEMENTATION
     Dosage: ^FOR YEARS^
  18. FOLIC ACID [Concomitant]
     Indication: VITAMIN SUPPLEMENTATION
  19. CENTRUM SILVER [Concomitant]
     Indication: VITAMIN SUPPLEMENTATION
     Dosage: ^FOR YEARS^
  20. TEMAZEPAM [Concomitant]
     Indication: INSOMNIA
     Dosage: ^FOR YEARS^
  21. LEVOTHYROXINE [Concomitant]
     Indication: THYROID DISORDER
     Dosage: ^FOR YEARS^
  22. NASONEX [Concomitant]
     Indication: ALLERGIC RESPIRATORY DISEASE
     Dosage: ^FOR YEARS^
  23. HYDROCORTISONE CREAM [Concomitant]
     Indication: STEROID THERAPY
  24. CETAPHIL LOTION [Concomitant]
     Indication: SKIN DISORDER

REACTIONS (1)
  - HAEMORRHAGIC DISORDER [None]
